FAERS Safety Report 8964765 (Version 3)
Quarter: 2013Q1

REPORT INFORMATION
  Report Type: Spontaneous
  Country: FI (occurrence: FI)
  Receive Date: 20121213
  Receipt Date: 20130128
  Transmission Date: 20140127
  Serious: Yes (Other)
  Sender: FDA-Public Use
  Company Number: FI-PFIZER INC-2012312167

PATIENT
  Sex: Male

DRUGS (5)
  1. LYRICA [Suspect]
     Dosage: UNK
  2. DIAPAM [Suspect]
     Dosage: UNK
  3. ALCOHOL [Suspect]
     Dosage: UNK
  4. AMFETAMINE SULFATE [Suspect]
     Dosage: UNK
  5. SUBUTEX [Suspect]
     Dosage: UNK

REACTIONS (1)
  - Drug abuse [Unknown]
